FAERS Safety Report 18511789 (Version 1)
Quarter: 2020Q4

REPORT INFORMATION
  Report Type: Other
  Country: GB (occurrence: GB)
  Receive Date: 20201117
  Receipt Date: 20201117
  Transmission Date: 20210114
  Serious: No
  Sender: FDA-Public Use
  Company Number: GB-LUPIN PHARMACEUTICALS INC.-2020-06570

PATIENT
  Age: 28 Year
  Sex: Female
  Weight: 59.6 kg

DRUGS (1)
  1. SERTRALINE [Suspect]
     Active Substance: SERTRALINE HYDROCHLORIDE
     Indication: ANXIETY
     Dosage: 50 MILLIGRAM, UNK
     Route: 065
     Dates: start: 20180205, end: 20200428

REACTIONS (1)
  - Amenorrhoea [Unknown]
